FAERS Safety Report 6725980-0 (Version None)
Quarter: 2010Q2

REPORT INFORMATION
  Report Type: 
  Country: None (occurrence: None)
  Receive Date: 20100514
  Receipt Date: 20100506
  Transmission Date: 20101027
  Serious: Yes (Death, Other)
  Sender: FDA-Public Use
  Company Number: US-PFIZER INC-2010058022

PATIENT
  Sex: Male

DRUGS (8)
  1. LIPITOR [Suspect]
     Indication: ATHEROSCLEROSIS PROPHYLAXIS
     Dosage: 80 MG, 1X/DAY
     Route: 048
  2. LIPITOR [Suspect]
     Dosage: 40 MG, UNK
  3. XANAX [Suspect]
     Indication: PARKINSON'S DISEASE
     Dosage: 0.25 MG, 2X/DAY
  4. XANAX [Suspect]
     Dosage: 2 MG, UNK
  5. SINEMET [Concomitant]
     Indication: PARKINSON'S DISEASE
     Dosage: 93:293
  6. STALEVO 100 [Concomitant]
     Indication: PARKINSON'S DISEASE
     Dosage: 150 MG, 4X/DAY
  7. GLYBURIDE [Concomitant]
     Indication: DIABETES MELLITUS
     Dosage: 2.5 MG, DAILY
  8. NEPHRAMINE [Concomitant]
     Indication: RENAL FAILURE CHRONIC
     Dosage: UNK

REACTIONS (7)
  - ASTHENIA [None]
  - CARDIAC ARREST [None]
  - CORONARY ARTERIAL STENT INSERTION [None]
  - DIABETES MELLITUS [None]
  - NON-HODGKIN'S LYMPHOMA [None]
  - PROSTATE CANCER [None]
  - RENAL FAILURE CHRONIC [None]
